FAERS Safety Report 18532707 (Version 1)
Quarter: 2020Q4

REPORT INFORMATION
  Report Type: Spontaneous
  Country: US (occurrence: US)
  Receive Date: 20201119
  Receipt Date: 20201119
  Transmission Date: 20210114
  Serious: Yes (Death)
  Sender: FDA-Public Use
  Company Number: None

PATIENT
  Age: 61 Year
  Sex: Female

DRUGS (1)
  1. PROMACTA [Suspect]
     Active Substance: ELTROMBOPAG OLAMINE
     Indication: APLASTIC ANAEMIA
     Route: 048
     Dates: start: 20200903, end: 20200923

REACTIONS (13)
  - Febrile neutropenia [None]
  - Hypoxia [None]
  - Hepatic vein thrombosis [None]
  - Thrombocytopenia [None]
  - Diarrhoea [None]
  - Aspiration [None]
  - Septic shock [None]
  - Acute hepatic failure [None]
  - Acute kidney injury [None]
  - Good syndrome [None]
  - Multiple organ dysfunction syndrome [None]
  - Sepsis [None]
  - Pneumonia [None]

NARRATIVE: CASE EVENT DATE: 20200923
